FAERS Safety Report 23573412 (Version 1)
Quarter: 2024Q1

REPORT INFORMATION
  Report Type: Spontaneous
  Country: US (occurrence: US)
  Receive Date: 20240228
  Receipt Date: 20240228
  Transmission Date: 20240409
  Serious: No
  Sender: FDA-Public Use
  Company Number: US-JNJFOC-20240266703

PATIENT
  Age: 4 Year
  Sex: Male

DRUGS (1)
  1. RISPERDAL M-TAB [Suspect]
     Active Substance: RISPERIDONE
     Indication: Attention deficit hyperactivity disorder
     Dosage: WITH VARYING DOSE (0.5 AND 1 MG) AND FREQUENCY (ONCE A DAY/BID/TID)
     Route: 048
     Dates: start: 20081212

REACTIONS (3)
  - Enuresis [Unknown]
  - Drug ineffective for unapproved indication [Unknown]
  - Off label use [Unknown]

NARRATIVE: CASE EVENT DATE: 20081212
